FAERS Safety Report 25538457 (Version 1)
Quarter: 2025Q3

REPORT INFORMATION
  Report Type: Spontaneous
  Country: US (occurrence: None)
  Receive Date: 20250709
  Receipt Date: 20250709
  Transmission Date: 20251021
  Serious: Yes (Other)
  Sender: FDA-CTU
  Company Number: None

PATIENT
  Age: 72 Year
  Sex: Female
  Weight: 99.9 kg

DRUGS (2)
  1. DUPIXENT [Suspect]
     Active Substance: DUPILUMAB
     Indication: Asthma
     Route: 058
     Dates: start: 20250409
  2. breztri Aerosphere 160-9-4.8 mcg/act inhaler [Concomitant]
     Dates: start: 20250318

REACTIONS (1)
  - Alopecia [None]

NARRATIVE: CASE EVENT DATE: 20250709
